FAERS Safety Report 20710267 (Version 2)
Quarter: 2022Q2

REPORT INFORMATION
  Report Type: Report from Study
  Country: CH (occurrence: CH)
  Receive Date: 20220414
  Receipt Date: 20220428
  Transmission Date: 20220721
  Serious: Yes (Other)
  Sender: FDA-Public Use
  Company Number: CH-TAKEDA-2022TUS024426

PATIENT
  Sex: Male
  Weight: 77 kg

DRUGS (1)
  1. BRENTUXIMAB VEDOTIN [Suspect]
     Active Substance: BRENTUXIMAB VEDOTIN
     Indication: Peripheral T-cell lymphoma unspecified
     Dosage: UNK
     Route: 065
     Dates: start: 20170428, end: 20170801

REACTIONS (3)
  - Polyneuropathy [Unknown]
  - Peripheral T-cell lymphoma unspecified [Unknown]
  - Off label use [Unknown]
